FAERS Safety Report 17931446 (Version 1)
Quarter: 2020Q2

REPORT INFORMATION
  Report Type: Spontaneous
  Country: DE (occurrence: DE)
  Receive Date: 20200623
  Receipt Date: 20200623
  Transmission Date: 20200714
  Serious: Yes (Death, Hospitalization, Other)
  Sender: FDA-Public Use
  Company Number: NVSC2020DE173517

PATIENT
  Age: 72 Year
  Sex: Male
  Weight: 57.8 kg

DRUGS (6)
  1. EVEROLIMUS. [Suspect]
     Active Substance: EVEROLIMUS
     Indication: HEART TRANSPLANT
     Dosage: UNK
     Route: 065
  2. MYCOPHENOLATE MOFETIL. [Suspect]
     Active Substance: MYCOPHENOLATE MOFETIL
     Indication: IMMUNOSUPPRESSANT DRUG THERAPY
     Dosage: 1000 MG, QD (500 MG, BID PER OS)
     Route: 048
  3. ENVARSUS XR [Suspect]
     Active Substance: TACROLIMUS
     Indication: HEART TRANSPLANT
     Dosage: 4 MG, QD (2 MG, BID)
     Route: 048
  4. EVEROLIMUS. [Suspect]
     Active Substance: EVEROLIMUS
     Indication: IMMUNOSUPPRESSANT DRUG THERAPY
     Dosage: 3 MG, QD (1.5 MG, BID)
     Route: 048
  5. MYCOPHENOLATE MOFETIL. [Suspect]
     Active Substance: MYCOPHENOLATE MOFETIL
     Indication: HEART TRANSPLANT
     Dosage: 1440 MG, QD (720 MG, BID)
     Route: 048
  6. ENVARSUS XR [Suspect]
     Active Substance: TACROLIMUS
     Indication: IMMUNOSUPPRESSANT DRUG THERAPY
     Dosage: 3 MG, QD (1.5 MG, BID PER OS)
     Route: 048

REACTIONS (9)
  - Device related infection [Unknown]
  - Pneumonitis [Unknown]
  - Off label use [Unknown]
  - Superinfection viral [Unknown]
  - Renal impairment [Unknown]
  - Acute respiratory distress syndrome [Unknown]
  - Septic shock [Fatal]
  - Post transplant lymphoproliferative disorder [Unknown]
  - Multiple organ dysfunction syndrome [Fatal]
